FAERS Safety Report 6095578-9 (Version None)
Quarter: 2009Q1

REPORT INFORMATION
  Report Type: 
  Country: None (occurrence: None)
  Receive Date: 20090227
  Receipt Date: 20080430
  Transmission Date: 20090719
  Serious: No
  Sender: FDA-Public Use
  Company Number: A0725630A

PATIENT
  Sex: Male

DRUGS (3)
  1. LAMICTAL [Suspect]
     Indication: DRUG USE FOR UNKNOWN INDICATION
     Dosage: 25MG PER DAY
     Route: 048
     Dates: start: 20080401, end: 20080401
  2. PAXIL [Concomitant]
  3. LOTREL [Concomitant]

REACTIONS (3)
  - HYPERHIDROSIS [None]
  - PAIN [None]
  - TONGUE ULCERATION [None]
